FAERS Safety Report 19374750 (Version 1)
Quarter: 2021Q2

REPORT INFORMATION
  Report Type: Spontaneous
  Country: CN (occurrence: CN)
  Receive Date: 20210604
  Receipt Date: 20210604
  Transmission Date: 20210717
  Serious: Yes (Life-Threatening, Other)
  Sender: FDA-Public Use
  Company Number: CN-BAYER-2021-152787

PATIENT
  Age: 71 Year
  Sex: Female
  Weight: 56 kg

DRUGS (1)
  1. IOPROMIDE. [Suspect]
     Active Substance: IOPROMIDE
     Indication: COMPUTERISED TOMOGRAM HEAD
     Dosage: 85 ML, ONCE
     Route: 042
     Dates: start: 20210528, end: 20210528

REACTIONS (4)
  - Respiratory rate increased [None]
  - Unresponsive to stimuli [Recovered/Resolved]
  - Blood pressure increased [None]
  - Heart rate increased [None]

NARRATIVE: CASE EVENT DATE: 20210528
